FAERS Safety Report 5319412-7 (Version None)
Quarter: 2007Q2

REPORT INFORMATION
  Report Type: 
  Country: None (occurrence: None)
  Receive Date: 20070508
  Receipt Date: 20070428
  Transmission Date: 20071010
  Serious: Yes (Other)
  Sender: FDA-Public Use
  Company Number: US-PFIZER INC-2007014112

PATIENT
  Sex: Male
  Weight: 59 kg

DRUGS (4)
  1. LIPITOR [Suspect]
     Indication: BLOOD CHOLESTEROL INCREASED
     Route: 048
     Dates: start: 20040112, end: 20061227
  2. LIPITOR [Suspect]
     Indication: HYPERLIPIDAEMIA
  3. LOPID [Suspect]
     Indication: HYPERTRIGLYCERIDAEMIA
     Route: 048
  4. ACETYLSALICYLIC ACID SRT [Concomitant]
     Route: 048

REACTIONS (6)
  - BLOOD CREATINE PHOSPHOKINASE INCREASED [None]
  - GLAUCOMA [None]
  - MUSCULAR WEAKNESS [None]
  - MYALGIA [None]
  - PARAESTHESIA [None]
  - WEIGHT INCREASED [None]
